FAERS Safety Report 13869909 (Version 7)
Quarter: 2017Q4

REPORT INFORMATION
  Report Type: Spontaneous
  Country: US (occurrence: US)
  Receive Date: 20170815
  Receipt Date: 20171204
  Transmission Date: 20180320
  Serious: Yes (Hospitalization, Other)
  Sender: FDA-Public Use
  Company Number: US-PFIZER INC-2017346173

PATIENT
  Age: 67 Year
  Sex: Female

DRUGS (1)
  1. ELELYSO [Suspect]
     Active Substance: TALIGLUCERASE ALFA
     Indication: GAUCHER^S DISEASE
     Dosage: UNK, (ONCE EVERY OTHER WEEK)(EVERY OTHER WEEK)
     Route: 042
     Dates: start: 2015

REACTIONS (12)
  - Fibromyalgia [Unknown]
  - Anxiety [Recovered/Resolved]
  - Chest injury [Recovered/Resolved]
  - Pelvic fracture [Not Recovered/Not Resolved]
  - Fatigue [Recovered/Resolved]
  - Underdose [Unknown]
  - Pain [Not Recovered/Not Resolved]
  - Osteoarthritis [Unknown]
  - Fall [Recovered/Resolved]
  - Rash [Unknown]
  - Nervousness [Recovered/Resolved]
  - Contusion [Recovered/Resolved]

NARRATIVE: CASE EVENT DATE: 201705
